FAERS Safety Report 22016715 (Version 1)
Quarter: 2023Q1

REPORT INFORMATION
  Report Type: Spontaneous
  Country: US (occurrence: US)
  Receive Date: 20230221
  Receipt Date: 20230221
  Transmission Date: 20230418
  Serious: No
  Sender: FDA-Public Use
  Company Number: US-PFIZER INC-202300073368

PATIENT
  Age: 80 Year
  Sex: Male

DRUGS (2)
  1. PRISTIQ EXTENDED-RELEASE [Suspect]
     Active Substance: DESVENLAFAXINE SUCCINATE
     Dosage: 50 MG
  2. ATIVAN [Suspect]
     Active Substance: LORAZEPAM
     Dosage: UNK, (4 TIMES AS MUCH FOR THE ATIVAN TO BE EFFECTIVE)

REACTIONS (1)
  - Drug ineffective [Unknown]
